FAERS Safety Report 19610557 (Version 1)
Quarter: 2021Q3

REPORT INFORMATION
  Report Type: Report from Study
  Country: EC (occurrence: EC)
  Receive Date: 20210726
  Receipt Date: 20210726
  Transmission Date: 20211014
  Serious: Yes (Other)
  Sender: FDA-Public Use
  Company Number: EC-EMD SERONO-9254110

PATIENT
  Sex: Female

DRUGS (3)
  1. REBIF [Suspect]
     Active Substance: INTERFERON BETA-1A
     Indication: MULTIPLE SCLEROSIS
     Route: 058
     Dates: start: 20210115
  2. COVID?19 VACCINE SINOVAC [Concomitant]
     Indication: COVID-19 IMMUNISATION
     Dates: start: 20210501
  3. COVID?19 VACCINE SINOVAC [Concomitant]
     Dates: start: 20210529

REACTIONS (1)
  - Cholelithiasis [Unknown]
